FAERS Safety Report 19696828 (Version 2)
Quarter: 2021Q4

REPORT INFORMATION
  Report Type: Report from Study
  Country: US (occurrence: None)
  Receive Date: 20210813
  Receipt Date: 20211124
  Transmission Date: 20220303
  Serious: Yes (Hospitalization)
  Sender: FDA-Public Use
  Company Number: US-EISAI MEDICAL RESEARCH-EC-2021-097849

PATIENT
  Age: 79 Year
  Sex: Female

DRUGS (4)
  1. LENVIMA [Suspect]
     Active Substance: LENVATINIB
     Indication: Endometrial cancer
     Route: 048
     Dates: start: 20210508, end: 20210526
  2. LENVIMA [Suspect]
     Active Substance: LENVATINIB
     Route: 048
     Dates: start: 20210601, end: 20210727
  3. LENVIMA [Suspect]
     Active Substance: LENVATINIB
     Route: 048
     Dates: start: 202110
  4. KEYTRUDA [Concomitant]
     Active Substance: PEMBROLIZUMAB
     Indication: Endometrial cancer
     Dosage: DOSE AND FREQUENCY UNKNOWN
     Route: 065

REACTIONS (1)
  - Transient ischaemic attack [Unknown]

NARRATIVE: CASE EVENT DATE: 20210727
